FAERS Safety Report 23449415 (Version 2)
Quarter: 2024Q2

REPORT INFORMATION
  Report Type: Spontaneous
  Country: US (occurrence: US)
  Receive Date: 20240129
  Receipt Date: 20240515
  Transmission Date: 20240716
  Serious: No
  Sender: FDA-Public Use
  Company Number: US-TARSUS PHARMACEUTICALS-TSP-US-2024-000012

PATIENT
  Age: 83 Year
  Sex: Male

DRUGS (4)
  1. XDEMVY [Suspect]
     Active Substance: LOTILANER
     Indication: Demodex blepharitis
     Dosage: 1 DROP, BID (INTO BOTH EYES FOR 6 WEEKS)
     Route: 047
     Dates: start: 20231218, end: 20231222
  2. TIMOLOL [Suspect]
     Active Substance: TIMOLOL
     Indication: Product used for unknown indication
     Dosage: UNK
     Route: 065
  3. BETIMOL [TIMOLOL] [Concomitant]
     Indication: Product used for unknown indication
     Dosage: 1 DROP, BID (IN BOTH EYES)
     Route: 065
  4. TIMLOL PF [Concomitant]
     Indication: Product used for unknown indication
     Dosage: UNK
     Route: 065

REACTIONS (5)
  - Hypersensitivity [Recovered/Resolved]
  - Dermatitis contact [Recovered/Resolved]
  - Lacrimation increased [Recovered/Resolved]
  - Conjunctival follicles [Recovered/Resolved]
  - Conjunctival hyperaemia [Recovered/Resolved]

NARRATIVE: CASE EVENT DATE: 20231201
